FAERS Safety Report 6800268-8 (Version None)
Quarter: 2010Q2

REPORT INFORMATION
  Report Type: 
  Country: None (occurrence: None)
  Receive Date: 20100616
  Receipt Date: 20100601
  Transmission Date: 20101027
  Serious: Yes (Death)
  Sender: FDA-Public Use
  Company Number: 2010060862

PATIENT
  Age: 60 Year
  Sex: Female
  Weight: 62.4 kg

DRUGS (15)
  1. DALTEPARIN SODIUM [Suspect]
     Indication: DEEP VEIN THROMBOSIS
     Dosage: 12.500 IU,SUBCUTANEOUS, 95.000, SUBCUTANEOUS
     Route: 058
     Dates: start: 20100428, end: 20100503
  2. DALTEPARIN SODIUM [Suspect]
     Indication: PULMONARY EMBOLISM
     Dosage: 12.500 IU,SUBCUTANEOUS, 95.000, SUBCUTANEOUS
     Route: 058
     Dates: start: 20100428, end: 20100503
  3. DALTEPARIN SODIUM [Suspect]
     Indication: DEEP VEIN THROMBOSIS
     Dosage: 12.500 IU,SUBCUTANEOUS, 95.000, SUBCUTANEOUS
     Route: 058
     Dates: start: 20100504, end: 20100505
  4. DALTEPARIN SODIUM [Suspect]
     Indication: PULMONARY EMBOLISM
     Dosage: 12.500 IU,SUBCUTANEOUS, 95.000, SUBCUTANEOUS
     Route: 058
     Dates: start: 20100504, end: 20100505
  5. DILAUDID [Concomitant]
  6. ZOFRAN [Concomitant]
  7. ATIVAN [Concomitant]
  8. TRAZODONE HCL [Concomitant]
  9. FENTANYL-100 [Concomitant]
  10. DILTIAZEM [Concomitant]
  11. HUMULIN R [Concomitant]
  12. CIPROFLOXACIN [Concomitant]
  13. DIOVANE (VALSARTAN) [Concomitant]
  14. METRONIDAZOLE [Concomitant]
  15. CEFTRIAXONE [Concomitant]

REACTIONS (4)
  - INTESTINAL ISCHAEMIA [None]
  - PERITONITIS [None]
  - SMALL INTESTINAL OBSTRUCTION [None]
  - TACHYCARDIA [None]
